FAERS Safety Report 11778275 (Version 1)
Quarter: 2015Q4

REPORT INFORMATION
  Report Type: Spontaneous
  Country: IT (occurrence: IT)
  Receive Date: 20151125
  Receipt Date: 20151125
  Transmission Date: 20160304
  Serious: Yes (Other)
  Sender: FDA-Public Use
  Company Number: IT-GLAXOSMITHKLINE-K201310064

PATIENT
  Age: 23 Year
  Sex: Female
  Weight: 48 kg

DRUGS (13)
  1. IBUPROFEN. [Suspect]
     Active Substance: IBUPROFEN
     Route: 065
     Dates: start: 20110516, end: 20110516
  2. VOLTAREN [Suspect]
     Active Substance: DICLOFENAC SODIUM
     Route: 048
     Dates: start: 20110516, end: 20110516
  3. VERMOX [Suspect]
     Active Substance: MEBENDAZOLE
     Route: 048
     Dates: start: 20110516, end: 20110516
  4. LEXOTANIL [Suspect]
     Active Substance: BROMAZEPAM
     Route: 048
     Dates: start: 20110516, end: 20110516
  5. FLUCONAZOLE. [Suspect]
     Active Substance: FLUCONAZOLE
     Route: 065
     Dates: start: 20110516, end: 20110516
  6. TACHIPIRINA [Suspect]
     Active Substance: ACETAMINOPHEN
     Route: 048
     Dates: start: 20110516, end: 20110516
  7. FERLIXIT [Suspect]
     Active Substance: SODIUM FERRIC GLUCONATE COMPLEX
     Route: 048
     Dates: start: 20110516, end: 20110516
  8. CETIRIZINE HYDROCHLORIDE. [Suspect]
     Active Substance: CETIRIZINE HYDROCHLORIDE
     Route: 048
     Dates: start: 20110516, end: 20110516
  9. CEFIXORAL [Suspect]
     Active Substance: CEFIXIME
     Route: 048
     Dates: start: 20110516, end: 20110516
  10. MUSCORIL [Suspect]
     Active Substance: THIOCOLCHICOSIDE
     Route: 048
     Dates: start: 20110516, end: 20110516
  11. NICOTINE. [Suspect]
     Active Substance: NICOTINE
     Route: 048
     Dates: start: 20110516, end: 20110516
  12. BENTELAN [Suspect]
     Active Substance: BETAMETHASONE SODIUM PHOSPHATE
     Route: 048
     Dates: start: 20110516, end: 20110516
  13. MOMENDOL [Suspect]
     Active Substance: NAPROXEN SODIUM
     Route: 048
     Dates: start: 20110516, end: 20110516

REACTIONS (2)
  - Self injurious behaviour [Unknown]
  - Drug abuse [Unknown]

NARRATIVE: CASE EVENT DATE: 20110516
